FAERS Safety Report 14491921 (Version 3)
Quarter: 2018Q1

REPORT INFORMATION
  Report Type: Report from Study
  Country: GB (occurrence: GB)
  Receive Date: 20180206
  Receipt Date: 20180329
  Transmission Date: 20180509
  Serious: Yes (Other)
  Sender: FDA-Public Use
  Company Number: GB-JNJFOC-20180202371

PATIENT
  Sex: Female
  Weight: 71.2 kg

DRUGS (12)
  1. PREDNISOLONE. [Concomitant]
     Active Substance: PREDNISOLONE
     Dosage: 2 TABLETS DAILY
     Route: 065
     Dates: start: 20180214
  2. LOPERAMIDE [Concomitant]
     Active Substance: LOPERAMIDE
     Dosage: INCREASE TO 4 CAPSULES DAILY AS ADVISED BY BOWEL SURGEON
     Route: 065
     Dates: start: 20170901
  3. LOPERAMIDE [Concomitant]
     Active Substance: LOPERAMIDE
     Route: 065
     Dates: start: 20170906
  4. MIRABEGRON [Concomitant]
     Active Substance: MIRABEGRON
     Route: 065
     Dates: start: 20171118
  5. OMEPRAZOLE. [Concomitant]
     Active Substance: OMEPRAZOLE
     Dosage: ONE DAILY WHILE ON DICLOFENAC, NEXT DUE ON 28-MAR-2018
     Route: 065
     Dates: start: 20180228
  6. PREDNISOLONE. [Concomitant]
     Active Substance: PREDNISOLONE
     Route: 065
     Dates: start: 20180314
  7. STELARA [Suspect]
     Active Substance: USTEKINUMAB
     Indication: PSORIATIC ARTHROPATHY
     Route: 058
     Dates: start: 20170608
  8. MIRABEGRON [Concomitant]
     Active Substance: MIRABEGRON
     Route: 065
     Dates: start: 20171019
  9. PARACETAMOL [Concomitant]
     Active Substance: ACETAMINOPHEN
     Dosage: ONE OR TWO TABLETS UP TO FOUR TIMES A DAY NOT MORE THAN 8 IN 24 HOURS
     Route: 065
     Dates: start: 20170901
  10. AMITRIPTYLINE [Concomitant]
     Active Substance: AMITRIPTYLINE
     Route: 065
     Dates: start: 20180314
  11. AMITRIPTYLINE [Concomitant]
     Active Substance: AMITRIPTYLINE
     Dosage: THREE TABLETS AT 6 PM EACH EVENING
     Route: 065
     Dates: start: 20180214
  12. PARACETAMOL [Concomitant]
     Active Substance: ACETAMINOPHEN
     Route: 065
     Dates: start: 20170929

REACTIONS (7)
  - Psoriatic arthropathy [Not Recovered/Not Resolved]
  - Inappropriate schedule of drug administration [Unknown]
  - Abdominal pain [Not Recovered/Not Resolved]
  - Nerve compression [Not Recovered/Not Resolved]
  - Headache [Not Recovered/Not Resolved]
  - Drug ineffective [Unknown]
  - Limb mass [Unknown]

NARRATIVE: CASE EVENT DATE: 2017
